FAERS Safety Report 24647777 (Version 1)
Quarter: 2024Q4

REPORT INFORMATION
  Report Type: Spontaneous
  Country: US (occurrence: None)
  Receive Date: 20241121
  Receipt Date: 20241121
  Transmission Date: 20250114
  Serious: Yes (Hospitalization)
  Sender: Public
  Company Number: None

PATIENT
  Age: 44 Year
  Sex: Male

DRUGS (2)
  1. METRONIDAZOLE [Suspect]
     Active Substance: METRONIDAZOLE
     Indication: Diverticulitis
     Dosage: FREQUENCY : 3 TIMES A DAY;?
     Route: 048
     Dates: start: 20240807, end: 20240808
  2. CIPROFLOXACIN [Suspect]
     Active Substance: CIPROFLOXACIN
     Dosage: FREQUENCY : TWICE A DAY;?
     Route: 048
     Dates: start: 20240807, end: 20240808

REACTIONS (3)
  - Pruritus [None]
  - Rash [None]
  - Throat tightness [None]

NARRATIVE: CASE EVENT DATE: 20240808
